FAERS Safety Report 15941962 (Version 1)
Quarter: 2019Q1

REPORT INFORMATION
  Report Type: Report from Study
  Country: None (occurrence: CO)
  Receive Date: 20190209
  Receipt Date: 20190209
  Transmission Date: 20190417
  Serious: Yes (Hospitalization)
  Sender: FDA-Public Use
  Company Number: CO-ABBVIE-19K-036-2639453-00

PATIENT
  Age: 58 Year
  Sex: Female
  Weight: 58 kg

DRUGS (1)
  1. HUMIRA [Suspect]
     Active Substance: ADALIMUMAB
     Indication: RHEUMATOID ARTHRITIS
     Route: 058
     Dates: start: 20181026

REACTIONS (2)
  - Rheumatoid arthritis [Not Recovered/Not Resolved]
  - Inflammation [Unknown]

NARRATIVE: CASE EVENT DATE: 20190104
